FAERS Safety Report 8243721-5 (Version None)
Quarter: 2012Q1

REPORT INFORMATION
  Report Type: 
  Country: None (occurrence: None)
  Receive Date: 20120329
  Receipt Date: 20110418
  Transmission Date: 20120608
  Serious: No
  Sender: FDA-Public Use
  Company Number: US-MYLANLABS-2011S1007968

PATIENT
  Age: 57 Year
  Sex: Male

DRUGS (6)
  1. EMSAM [Suspect]
     Indication: DELUSION
     Route: 062
     Dates: start: 20110414
  2. EMSAM [Suspect]
     Indication: DEPRESSION
     Route: 062
     Dates: start: 20110414
  3. NIFEDIPINE [Concomitant]
     Indication: BLOOD PRESSURE
  4. EMSAM [Suspect]
     Indication: SUICIDAL IDEATION
     Route: 062
     Dates: start: 20110414
  5. LEVOTHYROXINE SODIUM [Concomitant]
     Indication: AUTOIMMUNE THYROIDITIS
  6. URSODIOL [Concomitant]
     Indication: HEPATIC STEATOSIS

REACTIONS (1)
  - BLOOD PRESSURE INCREASED [None]
